FAERS Safety Report 8346749-X (Version None)
Quarter: 2012Q2

REPORT INFORMATION
  Report Type: 
  Country: None (occurrence: None)
  Receive Date: 20120509
  Receipt Date: 20120507
  Transmission Date: 20120825
  Serious: Yes (Death, Hospitalization)
  Sender: FDA-Public Use
  Company Number: AU-B.I. PHARMACEUTICALS,INC./RIDGEFIELD-2012-AU-00031AU

PATIENT
  Sex: Male

DRUGS (5)
  1. AMLODIPINE [Concomitant]
     Indication: HYPERTENSION
     Dosage: 10 MG
  2. COLCHICINE [Concomitant]
     Indication: GOUT
  3. PRADAXA [Suspect]
     Indication: CEREBROVASCULAR ACCIDENT PROPHYLAXIS
     Dosage: 220 MG
     Dates: start: 20111010
  4. PRADAXA [Suspect]
     Indication: ATRIAL FIBRILLATION
  5. VALPROATE SODIUM [Concomitant]
     Indication: EPILEPSY
     Dosage: 1000 MG

REACTIONS (4)
  - MALNUTRITION [None]
  - PNEUMONIA ASPIRATION [None]
  - DYSPHAGIA [None]
  - ILEUS [None]
